FAERS Safety Report 19284119 (Version 1)
Quarter: 2021Q2

REPORT INFORMATION
  Report Type: Report from Study
  Country: US (occurrence: US)
  Receive Date: 20210521
  Receipt Date: 20210521
  Transmission Date: 20210717
  Serious: Yes (Hospitalization)
  Sender: FDA-Public Use
  Company Number: US-MYLANLABS-2021M1028460

PATIENT
  Age: 55 Year
  Sex: Female

DRUGS (5)
  1. VINCRISTINE SULFATE. [Suspect]
     Active Substance: VINCRISTINE SULFATE
     Indication: DIFFUSE LARGE B-CELL LYMPHOMA
     Dosage: UNK, CYCLERECEIVED 6 CYCLES OF R?CHOP REGIMEN COMPRISING RITUXIMAB, CYCLOPHOSPHAMIDE..
     Route: 065
  2. DOXORUBICIN [Suspect]
     Active Substance: DOXORUBICIN
     Indication: DIFFUSE LARGE B-CELL LYMPHOMA
     Dosage: UNK, CYCLERECEIVED 6 CYCLES OF R?CHOP REGIMEN COMPRISING RITUXIMAB, CYCLOPHOSPHAMIDE..
     Route: 065
  3. CYCLOPHOSPHAMIDE. [Suspect]
     Active Substance: CYCLOPHOSPHAMIDE
     Indication: DIFFUSE LARGE B-CELL LYMPHOMA
     Dosage: UNK, CYCLERECEIVED 6 CYCLES OF R?CHOP REGIMEN COMPRISING RITUXIMAB, CYCLOPHOSPHAMIDE..
     Route: 065
  4. PREDNISONE. [Suspect]
     Active Substance: PREDNISONE
     Indication: DIFFUSE LARGE B-CELL LYMPHOMA
     Dosage: UNK, CYCLERECEIVED 6 CYCLES OF R?CHOP REGIMEN COMPRISING RITUXIMAB, CYCLOPHOSPHAMIDE..
     Route: 065
  5. RITUXIMAB. [Suspect]
     Active Substance: RITUXIMAB
     Indication: DIFFUSE LARGE B-CELL LYMPHOMA
     Dosage: UNK, CYCLERECEIVED 6 CYCLES OF R?CHOP REGIMEN COMPRISING RITUXIMAB, CYCLOPHOSPHAMIDE..
     Route: 065

REACTIONS (2)
  - Tumour necrosis [Recovered/Resolved]
  - Mass [Recovered/Resolved]
